FAERS Safety Report 10224838 (Version 2)
Quarter: 2014Q2

REPORT INFORMATION
  Report Type: Spontaneous
  Country: US (occurrence: US)
  Receive Date: 20140609
  Receipt Date: 20140609
  Transmission Date: 20141212
  Serious: Yes (Other)
  Sender: FDA-Public Use
  Company Number: US-AMGEN-USASP2014033153

PATIENT
  Age: 54 Year
  Sex: Male
  Weight: 66 kg

DRUGS (3)
  1. SENSIPAR [Suspect]
     Indication: HYPERPARATHYROIDISM SECONDARY
     Dosage: 60 MG, BEFORE BEDTIME
     Route: 048
     Dates: start: 2013
  2. RENVELA [Concomitant]
     Indication: BLOOD PHOSPHORUS INCREASED
     Dosage: 2/MCAL, TID
     Dates: start: 20130417
  3. HECTOROL [Concomitant]
     Indication: BLOOD PARATHYROID HORMONE INCREASED
     Dosage: 1 MUG, QID
     Route: 042
     Dates: start: 2010

REACTIONS (2)
  - Malaise [Unknown]
  - Photosensitivity reaction [Not Recovered/Not Resolved]
